FAERS Safety Report 12053741 (Version 2)
Quarter: 2016Q1

REPORT INFORMATION
  Report Type: Report from Study
  Country: NO (occurrence: NO)
  Receive Date: 20160209
  Receipt Date: 20160209
  Transmission Date: 20160526
  Serious: Yes (Other)
  Sender: FDA-Public Use
  Company Number: NO-PFIZER INC-2016062455

PATIENT
  Age: 9 Year
  Sex: Male

DRUGS (2)
  1. SERTRALINE HCL [Suspect]
     Active Substance: SERTRALINE HYDROCHLORIDE
     Dosage: 125 FINAL DAILY DOSE
  2. SERTRALINE HCL [Suspect]
     Active Substance: SERTRALINE HYDROCHLORIDE
     Indication: OBSESSIVE-COMPULSIVE DISORDER
     Dosage: UNK

REACTIONS (6)
  - Impulsive behaviour [Unknown]
  - Fatigue [Unknown]
  - Therapy responder [Unknown]
  - Restlessness [Unknown]
  - Suicidal ideation [Unknown]
  - Tension [Unknown]
